FAERS Safety Report 17179252 (Version 2)
Quarter: 2020Q1

REPORT INFORMATION
  Report Type: Spontaneous
  Country: US (occurrence: US)
  Receive Date: 20191219
  Receipt Date: 20200225
  Transmission Date: 20200409
  Serious: Yes (Death, Other)
  Sender: FDA-Public Use
  Company Number: US-BRISTOL-MYERS SQUIBB COMPANY-BMS-2019-121221

PATIENT
  Age: 55 Year
  Sex: Male
  Weight: 113.38 kg

DRUGS (1)
  1. OPDIVO [Suspect]
     Active Substance: NIVOLUMAB
     Indication: MALIGNANT MELANOMA
     Dosage: UNAVAILABLE
     Route: 065
     Dates: start: 201909

REACTIONS (1)
  - Death [Fatal]

NARRATIVE: CASE EVENT DATE: 20191216
